FAERS Safety Report 8829694 (Version 1)
Quarter: 2012Q4

REPORT INFORMATION
  Report Type: Report from Study
  Country: IT (occurrence: IT)
  Receive Date: 20121008
  Receipt Date: 20121008
  Transmission Date: 20130627
  Serious: Yes (Hospitalization, Other)
  Sender: FDA-Public Use
  Company Number: IT-CELGENEUS-083-21880-12093281

PATIENT

DRUGS (8)
  1. REVLIMID [Suspect]
     Indication: LYMPHOMA
     Dosage: 25 Milligram
     Route: 048
     Dates: start: 20110214, end: 20110306
  2. REVLIMID [Suspect]
     Dosage: 25 Milligram
     Route: 048
     Dates: start: 20110411, end: 20110506
  3. REVLIMID [Suspect]
     Dosage: 25 Milligram
     Route: 048
     Dates: start: 20110516, end: 20110605
  4. REVLIMID [Suspect]
     Dosage: 25 Milligram
     Route: 048
     Dates: start: 20110314, end: 20110403
  5. DEXAMETHASONE [Concomitant]
     Indication: LYMPHOMA
     Dosage: 25 Milligram
     Route: 048
     Dates: start: 20110214, end: 20110306
  6. DEXAMETHASONE [Concomitant]
     Dosage: 25 Milligram
     Route: 048
     Dates: start: 20110411, end: 20110506
  7. DEXAMETHASONE [Concomitant]
     Dosage: 25 Milligram
     Route: 048
     Dates: start: 20110516, end: 20110605
  8. DEXAMETHASONE [Concomitant]
     Dosage: 25 Milligram
     Route: 048
     Dates: start: 20110314, end: 20110403

REACTIONS (14)
  - Venous thrombosis [Unknown]
  - Anaemia [Unknown]
  - Thrombocytopenia [Unknown]
  - Diarrhoea [Unknown]
  - Fatigue [Unknown]
  - Arrhythmia [Unknown]
  - Dysaesthesia [Unknown]
  - Dysaesthesia [Unknown]
  - Oral herpes [Unknown]
  - Anaemia [Unknown]
  - Leukopenia [Unknown]
  - Oedema peripheral [Unknown]
  - Diarrhoea [Unknown]
  - Fatigue [Unknown]
